FAERS Safety Report 12764818 (Version 2)
Quarter: 2016Q4

REPORT INFORMATION
  Report Type: Spontaneous
  Country: FR (occurrence: FR)
  Receive Date: 20160921
  Receipt Date: 20161007
  Transmission Date: 20170207
  Serious: Yes (Other)
  Sender: FDA-Public Use
  Company Number: FR-BAXTER-2016BAX047227

PATIENT
  Age: 1 Month
  Sex: Female

DRUGS (16)
  1. OE PEDIATRICS [Suspect]
     Active Substance: ELECTROLYTES NOS\MINERALS
     Indication: PARENTERAL NUTRITION
     Dosage: PER BAG
     Route: 042
     Dates: start: 201609
  2. PRIMENE 10%, SOLUTION INJECTABLE POUR PERFUSION [Suspect]
     Active Substance: AMINO ACIDS
     Indication: PARENTERAL NUTRITION
     Dosage: PER BAG
     Route: 042
     Dates: start: 201609
  3. GLUCOSE CALCIUM 10% [Suspect]
     Active Substance: CALCIUM\DEXTROSE
     Indication: PARENTERAL NUTRITION
     Dosage: PER BAG
     Route: 042
     Dates: start: 201609
  4. AMOXICILLIN. [Concomitant]
     Active Substance: AMOXICILLIN
     Indication: PRODUCT USED FOR UNKNOWN INDICATION
     Route: 042
  5. EAU POUR PREPARATIONS INJECTABLES VIAFLO, SOLVANT POUR PR?PARATION PAR [Suspect]
     Active Substance: WATER
     Indication: PARENTERAL NUTRITION
     Dosage: PER BAG
     Route: 042
     Dates: start: 201609
  6. SODIUM CHLORIDE 20% [Suspect]
     Active Substance: SODIUM CHLORIDE
     Indication: PARENTERAL NUTRITION
     Dosage: PER BAG
     Route: 042
     Dates: start: 201609
  7. RIFAMYCIN [Concomitant]
     Active Substance: RIFAMYCIN
     Indication: PRODUCT USED FOR UNKNOWN INDICATION
     Dosage: VIA PERIPHERAL VENOUS LINE
     Route: 065
  8. SUFENTANIL [Concomitant]
     Active Substance: SUFENTANIL
     Indication: PRODUCT USED FOR UNKNOWN INDICATION
     Route: 065
     Dates: end: 20160906
  9. MORPHINE [Concomitant]
     Active Substance: MORPHINE
     Indication: PRODUCT USED FOR UNKNOWN INDICATION
     Route: 048
     Dates: start: 20160906
  10. MAGNESIUM SULFATE. [Suspect]
     Active Substance: MAGNESIUM SULFATE
     Indication: PARENTERAL NUTRITION
     Dosage: PER BAG
     Route: 042
     Dates: start: 201609
  11. CAFFEINE. [Concomitant]
     Active Substance: CAFFEINE
     Indication: PRODUCT USED FOR UNKNOWN INDICATION
     Route: 042
  12. PHOCYTAN [Suspect]
     Active Substance: .ALPHA.-GLUCOSE-1-PHOSPHATE
     Indication: PARENTERAL NUTRITION
     Dosage: PER BAG
     Route: 042
     Dates: start: 201609
  13. GLUCOSE 50% [Suspect]
     Active Substance: DEXTROSE
     Indication: PARENTERAL NUTRITION
     Dosage: PER BAG
     Route: 042
     Dates: start: 201609
  14. MEDIALIPIDE [Suspect]
     Active Substance: MEDIUM-CHAIN TRIGLYCERIDES\SOYBEAN OIL
     Indication: PARENTERAL NUTRITION
     Dosage: PER BAG
     Route: 042
     Dates: start: 201609
  15. CERNEVIT [Suspect]
     Active Substance: VITAMINS
     Indication: PARENTERAL NUTRITION
     Dosage: PER BAG
     Route: 042
     Dates: start: 201609
  16. POTASSIUM CHLORIDE 10% [Suspect]
     Active Substance: POTASSIUM CHLORIDE
     Indication: PARENTERAL NUTRITION
     Dosage: PER BAG
     Route: 042
     Dates: start: 201609

REACTIONS (3)
  - Abdominal distension [Recovered/Resolved]
  - Hyperthermia [Recovered/Resolved]
  - General physical health deterioration [Recovered/Resolved]

NARRATIVE: CASE EVENT DATE: 20160909
